FAERS Safety Report 22652320 (Version 2)
Quarter: 2024Q1

REPORT INFORMATION
  Report Type: Report from Study
  Country: US (occurrence: US)
  Receive Date: 20230628
  Receipt Date: 20240228
  Transmission Date: 20240409
  Serious: Yes (Other)
  Sender: FDA-Public Use
  Company Number: US-ABBVIE-4296937

PATIENT
  Age: 52 Year
  Sex: Female

DRUGS (3)
  1. HUMIRA [Suspect]
     Active Substance: ADALIMUMAB
     Indication: Ankylosing spondylitis
     Dosage: CITRATE FREE?FORM STRENGTH: 40 MILLIGRAM
     Route: 058
     Dates: start: 20220824
  2. HUMIRA [Suspect]
     Active Substance: ADALIMUMAB
     Indication: Rheumatoid arthritis
  3. GABAPENTIN [Concomitant]
     Active Substance: GABAPENTIN
     Indication: Product used for unknown indication
     Dosage: INCREASED DOSE

REACTIONS (8)
  - Systemic lupus erythematosus rash [Unknown]
  - Renal pain [Unknown]
  - Pain in extremity [Not Recovered/Not Resolved]
  - Thrombosis [Unknown]
  - Cerebrovascular accident [Unknown]
  - Contusion [Unknown]
  - Back pain [Not Recovered/Not Resolved]
  - Arthralgia [Unknown]

NARRATIVE: CASE EVENT DATE: 20230529
